FAERS Safety Report 24874190 (Version 1)
Quarter: 2025Q1

REPORT INFORMATION
  Report Type: Spontaneous
  Country: GB (occurrence: GB)
  Receive Date: 20250122
  Receipt Date: 20250122
  Transmission Date: 20250409
  Serious: Yes (Hospitalization, Other)
  Sender: TEVA
  Company Number: None

PATIENT
  Age: 74 Year
  Sex: Male

DRUGS (7)
  1. PROPRANOLOL [Suspect]
     Active Substance: PROPRANOLOL HYDROCHLORIDE
     Indication: Product used for unknown indication
     Dosage: ONE TO BE TAKEN TWICE A DAY - MORNING AND NIGHT STOPPED, NOT WORKING FOR TREMOR AND CAN CAUSE PER...
     Route: 065
  2. DOXAZOSIN [Concomitant]
     Active Substance: DOXAZOSIN MESYLATE
     Indication: Product used for unknown indication
     Dosage: 4 MG TABLETS : TWO TO BE TAKEN EACH DAY - MORNING AND EVENING
     Route: 065
  3. ACETAMINOPHEN [Concomitant]
     Active Substance: ACETAMINOPHEN
     Indication: Product used for unknown indication
     Route: 065
  4. ATORVASTATIN [Concomitant]
     Active Substance: ATORVASTATIN
     Indication: Product used for unknown indication
     Dosage: ONE TO BE TAKEN EARLY EVENING - EVERY NIGHT-INCREASED
     Route: 065
  5. Dihydrocodeine; Paracetamol [Concomitant]
     Indication: Product used for unknown indication
     Route: 065
  6. LANSOPRAZOLE [Concomitant]
     Active Substance: LANSOPRAZOLE
     Indication: Product used for unknown indication
     Dosage: ONE TO BE TAKEN EACH MORNING, DAILY DOSE:15 MG DAILY
     Route: 065
  7. PERINDOPRIL [Concomitant]
     Active Substance: PERINDOPRIL
     Indication: Product used for unknown indication
     Dosage: 2 MG TABLETS, ONE TO BE TAKEN EACH MORNING BEFORE FOOD -  EVERY MORNING- INCREASED
     Route: 065

REACTIONS (1)
  - Peripheral ischaemia [Recovered/Resolved]
